FAERS Safety Report 5912169-8 (Version None)
Quarter: 2008Q3

REPORT INFORMATION
  Report Type: 
  Country: None (occurrence: None)
  Receive Date: 20080916
  Receipt Date: 20080916
  Transmission Date: 20090109
  Serious: Yes (Other)
  Sender: FDA-Public Use
  Company Number: None

PATIENT
  Age: 20 Year
  Sex: Male
  Weight: 70 kg

DRUGS (4)
  1. DIANOBOL ZOE LABS [Suspect]
     Indication: MUSCLE BUILDING THERAPY
     Dates: start: 20080826, end: 20080909
  2. INOSINE [Concomitant]
  3. COLOSTRUM [Concomitant]
  4. GONADOTROPIN RELEASING HORMONE + ASSOCIATED PEPTIDE [Concomitant]

REACTIONS (7)
  - BLOOD BICARBONATE INCREASED [None]
  - BLOOD CREATININE INCREASED [None]
  - HAEMATURIA [None]
  - HYPERKALAEMIA [None]
  - PROTEINURIA [None]
  - SINUS BRADYCARDIA [None]
  - WRONG DRUG ADMINISTERED [None]
